FAERS Safety Report 15271381 (Version 1)
Quarter: 2018Q3

REPORT INFORMATION
  Report Type: Spontaneous
  Country: US (occurrence: US)
  Receive Date: 20180813
  Receipt Date: 20180813
  Transmission Date: 20181010
  Serious: No
  Sender: FDA-Public Use
  Company Number: US-SA-2018SA208550

PATIENT
  Sex: Female

DRUGS (7)
  1. LANTUS [Suspect]
     Active Substance: INSULIN GLARGINE
     Indication: TYPE 2 DIABETES MELLITUS
     Dosage: 18?20 UNITS
  2. INVOKANA [Concomitant]
     Active Substance: CANAGLIFLOZIN
  3. FUROSEMIDE. [Concomitant]
     Active Substance: FUROSEMIDE
  4. BISOPROLOL [Concomitant]
     Active Substance: BISOPROLOL
  5. METFORMIN [Concomitant]
     Active Substance: METFORMIN HYDROCHLORIDE
     Indication: TYPE 2 DIABETES MELLITUS
  6. DIGOXIN. [Concomitant]
     Active Substance: DIGOXIN
  7. BABY ASPIRIN [Concomitant]
     Active Substance: ASPIRIN

REACTIONS (1)
  - Drug ineffective [Unknown]
